FAERS Safety Report 5204537-7 (Version None)
Quarter: 2007Q1

REPORT INFORMATION
  Report Type: 
  Country: None (occurrence: None)
  Receive Date: 20070110
  Receipt Date: 20060501
  Transmission Date: 20070707
  Serious: No
  Sender: FDA-Public Use
  Company Number: US-BRISTOL-MYERS SQUIBB COMPANY-13363932

PATIENT
  Sex: Male

DRUGS (4)
  1. ABILIFY [Suspect]
  2. CELEXA [Concomitant]
  3. WELLBUTRIN [Concomitant]
  4. NEURONTIN [Concomitant]

REACTIONS (1)
  - DYSKINESIA [None]
